FAERS Safety Report 22334116 (Version 1)
Quarter: 2023Q2

REPORT INFORMATION
  Report Type: Spontaneous
  Country: None (occurrence: US)
  Receive Date: 20230517
  Receipt Date: 20230517
  Transmission Date: 20230721
  Serious: No
  Sender: FDA-Public Use
  Company Number: US-Allermed Laboratories, Inc.-2141623

PATIENT
  Age: 74 Year
  Sex: Female
  Weight: 64.1 kg

DRUGS (1)
  1. STANDARDIZED BERMUDA GRASS [Suspect]
     Active Substance: CYNODON DACTYLON POLLEN
     Indication: Rhinitis allergic
     Route: 058
     Dates: start: 20170728

REACTIONS (4)
  - Upper-airway cough syndrome [Unknown]
  - Paranasal sinus discomfort [Unknown]
  - Productive cough [Unknown]
  - Ear pain [Unknown]

NARRATIVE: CASE EVENT DATE: 20230221
